FAERS Safety Report 5517594-5 (Version None)
Quarter: 2007Q4

REPORT INFORMATION
  Report Type: 
  Country: None (occurrence: None)
  Receive Date: 20071114
  Receipt Date: 20071102
  Transmission Date: 20080405
  Serious: Yes (Hospitalization, Other)
  Sender: FDA-Public Use
  Company Number: US-PFIZER INC-2007085504

PATIENT
  Sex: Male
  Weight: 122 kg

DRUGS (21)
  1. SUTENT [Suspect]
     Indication: METASTATIC RENAL CELL CARCINOMA
     Route: 048
     Dates: start: 20051223
  2. FLEXERIL [Concomitant]
     Route: 048
     Dates: start: 20070928, end: 20071002
  3. DARVOCET [Concomitant]
     Route: 048
     Dates: start: 20071002, end: 20071003
  4. CIPROFLOXACIN [Concomitant]
     Route: 048
     Dates: start: 20070821, end: 20070830
  5. PERCOCET [Concomitant]
     Route: 048
     Dates: start: 20071002, end: 20071008
  6. METRONIDAZOLE [Concomitant]
     Route: 042
     Dates: start: 20071008, end: 20071021
  7. LEVAQUIN [Concomitant]
     Route: 042
     Dates: start: 20071009, end: 20071009
  8. LEVAQUIN [Concomitant]
     Route: 042
     Dates: start: 20071005, end: 20071021
  9. MAGNESIUM CITRATE [Concomitant]
     Route: 048
     Dates: start: 20071005, end: 20071014
  10. COZAAR [Concomitant]
     Route: 048
     Dates: start: 20071009, end: 20071015
  11. ERYTHROMYCIN [Concomitant]
     Route: 048
     Dates: start: 20071010, end: 20071015
  12. FENTANYL [Concomitant]
     Route: 042
     Dates: start: 20071009, end: 20071015
  13. PHOSPHATES ENEMA [Concomitant]
     Route: 048
     Dates: start: 20071010, end: 20071014
  14. MACROGOL [Concomitant]
     Route: 048
     Dates: start: 20071010, end: 20071015
  15. LASIX [Concomitant]
     Route: 042
     Dates: start: 20071010, end: 20071016
  16. MORPHINE [Concomitant]
     Route: 042
     Dates: start: 20071009, end: 20071021
  17. NEOMYCIN [Concomitant]
     Route: 048
     Dates: start: 20071010, end: 20071015
  18. OXYCONTIN [Concomitant]
     Route: 048
     Dates: start: 20071010
  19. PERCOCET [Concomitant]
     Dosage: TEXT:5/325
     Route: 048
     Dates: start: 20071010
  20. ZOFRAN [Concomitant]
     Route: 042
     Dates: start: 20071008, end: 20071021
  21. SODIUM CHLORIDE [Concomitant]
     Route: 042
     Dates: start: 20071008, end: 20071020

REACTIONS (5)
  - ABDOMINAL PAIN [None]
  - ENTEROVESICAL FISTULA [None]
  - HYPERCALCAEMIA [None]
  - HYPONATRAEMIA [None]
  - URINARY TRACT INFECTION [None]
